FAERS Safety Report 23856072 (Version 3)
Quarter: 2024Q2

REPORT INFORMATION
  Report Type: Report from Study
  Country: US (occurrence: US)
  Receive Date: 20240515
  Receipt Date: 20240605
  Transmission Date: 20240716
  Serious: No
  Sender: FDA-Public Use
  Company Number: US-DECIPHERA PHARMACEUTICALS LLC-2024US000409

PATIENT
  Age: 53 Year
  Sex: Male

DRUGS (2)
  1. QINLOCK [Suspect]
     Active Substance: RIPRETINIB
     Indication: Gastrointestinal stromal tumour
     Dosage: 150 MILLIGRAM, QD
     Route: 048
  2. QINLOCK [Suspect]
     Active Substance: RIPRETINIB
     Dosage: 150 MILLIGRAM, QD
     Route: 048
     Dates: start: 20240503

REACTIONS (6)
  - Muscle tightness [Unknown]
  - Hair texture abnormal [Unknown]
  - Rash [Unknown]
  - Hypertension [Not Recovered/Not Resolved]
  - Tumour pain [Unknown]
  - Bruxism [Unknown]

NARRATIVE: CASE EVENT DATE: 20240509
